FAERS Safety Report 7971648-2 (Version None)
Quarter: 2011Q4

REPORT INFORMATION
  Report Type: 
  Country: None (occurrence: None)
  Receive Date: 20111212
  Receipt Date: 20111208
  Transmission Date: 20120403
  Serious: Yes (Death, Hospitalization)
  Sender: FDA-Public Use
  Company Number: US-B.I. PHARMACEUTICALS,INC./RIDGEFIELD-2011-BP-21222BP

PATIENT
  Age: 94 Year
  Sex: Female

DRUGS (11)
  1. PRILOSEC [Concomitant]
     Dosage: 20 MG
  2. CALCIUM [Concomitant]
     Dosage: 1200 MG
  3. PRADAXA [Suspect]
  4. FOSAMAX [Concomitant]
  5. METOPROLOL TARTRATE [Concomitant]
     Dosage: 100 MG
  6. PREDNISONE [Concomitant]
     Dosage: 10 MG
  7. VERAPAMIL [Concomitant]
     Dosage: 360 MG
  8. IBUPROFEN [Concomitant]
  9. ACETAMINOPHEN [Concomitant]
  10. PRADAXA [Suspect]
     Indication: ATRIAL FIBRILLATION
     Dosage: 300 MG
     Route: 048
     Dates: start: 20110509, end: 20110518
  11. POTASSIUM CHLORIDE [Concomitant]
     Dosage: 20 MEQ

REACTIONS (3)
  - DEATH [None]
  - EPISTAXIS [None]
  - RECTAL HAEMORRHAGE [None]
